FAERS Safety Report 13158747 (Version 1)
Quarter: 2017Q1

REPORT INFORMATION
  Report Type: Spontaneous
  Country: US (occurrence: US)
  Receive Date: 20170127
  Receipt Date: 20170127
  Transmission Date: 20170428
  Serious: Yes (Hospitalization, Other)
  Sender: FDA-Public Use
  Company Number: US-ABBVIE-17P-163-1848563-00

PATIENT
  Sex: Male

DRUGS (3)
  1. NIASPAN [Suspect]
     Active Substance: NIACIN
     Indication: PRODUCT USED FOR UNKNOWN INDICATION
     Route: 048
  2. NIACIN ER [Suspect]
     Active Substance: NIACIN
     Indication: PRODUCT USED FOR UNKNOWN INDICATION
     Route: 048
  3. NIACIN ER [Suspect]
     Active Substance: NIACIN
     Route: 048

REACTIONS (6)
  - Renal failure [Recovered/Resolved]
  - Low density lipoprotein increased [Not Recovered/Not Resolved]
  - Fluid retention [Unknown]
  - Blood triglycerides increased [Not Recovered/Not Resolved]
  - Flushing [Not Recovered/Not Resolved]
  - Blood cholesterol increased [Not Recovered/Not Resolved]

NARRATIVE: CASE EVENT DATE: 2015
